FAERS Safety Report 9939276 (Version 1)
Quarter: 2014Q1

REPORT INFORMATION
  Report Type: Report from Study
  Country: US (occurrence: US)
  Receive Date: 20140303
  Receipt Date: 20140303
  Transmission Date: 20141002
  Serious: Yes (Other)
  Sender: FDA-Public Use
  Company Number: US-ABBVIE-13P-163-1037370-00

PATIENT
  Age: 30 Year
  Sex: Female

DRUGS (8)
  1. HUMIRA [Suspect]
     Indication: RHEUMATOID ARTHRITIS
  2. CELEBREX [Concomitant]
     Indication: ARTHRITIS
  3. CELEBREX [Concomitant]
     Indication: SYSTEMIC LUPUS ERYTHEMATOSUS
  4. ADDERALL [Concomitant]
     Indication: ATTENTION DEFICIT/HYPERACTIVITY DISORDER
  5. PHENTERMINE [Concomitant]
     Indication: WEIGHT CONTROL
  6. ACYCLOVIR [Concomitant]
     Indication: ORAL HERPES
  7. KLONAPIN [Concomitant]
     Indication: INSOMNIA
  8. KLONAPIN [Concomitant]
     Indication: DEPRESSION

REACTIONS (9)
  - Knee operation [Unknown]
  - Injection site pain [Not Recovered/Not Resolved]
  - Incorrect dose administered [Unknown]
  - Injection site extravasation [Unknown]
  - Injection site bruising [Unknown]
  - Injection site laceration [Unknown]
  - Headache [Unknown]
  - Nausea [Unknown]
  - Fatigue [Unknown]
